FAERS Safety Report 6972385-3 (Version None)
Quarter: 2010Q3

REPORT INFORMATION
  Report Type: 
  Country: None (occurrence: None)
  Receive Date: 20100909
  Receipt Date: 20100826
  Transmission Date: 20110219
  Serious: Yes (Disabling, Other)
  Sender: FDA-Public Use
  Company Number: IT-RANBAXY-2010RR-36448

PATIENT
  Age: 59 Year
  Sex: Male

DRUGS (7)
  1. ATORVASTATIN [Suspect]
     Dosage: 40 MG, UNK
  2. CLARITHROMYCIN [Suspect]
     Indication: LUNG INFECTION
     Dosage: 500 MG, UNK
  3. PRAVASTATIN [Concomitant]
     Indication: DYSLIPIDAEMIA
     Dosage: 40 MG, UNK
  4. INSULIN LISPRO [Concomitant]
  5. INSULIN GLARGINE [Concomitant]
  6. RAMIPRIL [Concomitant]
     Dosage: 5 MG, UNK
  7. AMLODIPINE [Concomitant]
     Dosage: 10 MG, UNK

REACTIONS (3)
  - DRUG INTERACTION [None]
  - MONONEUROPATHY [None]
  - RHABDOMYOLYSIS [None]
